FAERS Safety Report 18253660 (Version 1)
Quarter: 2020Q3

REPORT INFORMATION
  Report Type: Spontaneous
  Country: JP (occurrence: JP)
  Receive Date: 20200910
  Receipt Date: 20200910
  Transmission Date: 20201103
  Serious: Yes (Hospitalization, Other)
  Sender: FDA-Public Use
  Company Number: JP-ALLERGAN-2034098US

PATIENT
  Sex: Female

DRUGS (16)
  1. LAXOBERON [Concomitant]
     Active Substance: SODIUM PICOSULFATE
     Indication: CONSTIPATION
     Dosage: UNK UNK, UNKNOWN FREQ.
     Route: 048
  2. AMLODIPINE [Concomitant]
     Active Substance: AMLODIPINE BESYLATE
     Indication: BLOOD PRESSURE MANAGEMENT
     Dosage: UNK UNK, UNKNOWN FREQ.
     Route: 065
  3. IRRIBOW [Suspect]
     Active Substance: RAMOSETRON HYDROCHLORIDE
     Dosage: 2.5 ?G, QD
     Route: 048
  4. GOOFICE [Concomitant]
     Active Substance: ELOBIXIBAT
     Indication: CONSTIPATION
     Dosage: UNK
     Route: 048
  5. TAKECAB [Concomitant]
     Active Substance: VONOPRAZAN FUMARATE
     Indication: GASTROOESOPHAGEAL REFLUX DISEASE
     Dosage: UNK
     Route: 065
  6. IRRIBOW [Suspect]
     Active Substance: RAMOSETRON HYDROCHLORIDE
     Indication: IRRITABLE BOWEL SYNDROME
     Dosage: UNK UNK, UNKNOWN FREQ.
     Route: 048
  7. BISONO [Suspect]
     Active Substance: BISOPROLOL
     Indication: BLOOD PRESSURE MANAGEMENT
     Dosage: UNK UNK, UNKNOWN FREQ.
     Route: 065
  8. BUSCOPAN [Concomitant]
     Active Substance: BUTYLSCOPOLAMINE BROMIDE
     Indication: ABDOMINAL PAIN
     Dosage: UNK
     Route: 065
  9. QUETIAPINE. [Concomitant]
     Active Substance: QUETIAPINE
     Indication: PRODUCT USED FOR UNKNOWN INDICATION
     Dosage: UNK UNK, UNKNOWN FREQ.
     Route: 048
  10. METOCLOPRAMIDE. [Concomitant]
     Active Substance: METOCLOPRAMIDE
     Indication: GASTROOESOPHAGEAL REFLUX DISEASE
     Dosage: UNK
     Route: 065
  11. LINACLOTIDE ? BP [Suspect]
     Active Substance: LINACLOTIDE
     Indication: IRRITABLE BOWEL SYNDROME
     Dosage: UNK UNK, UNKNOWN FREQ.
     Route: 048
  12. ETIZOLAM [Concomitant]
     Active Substance: ETIZOLAM
     Indication: ABDOMINAL PAIN
     Dosage: UNK
     Route: 065
  13. LANSOPRAZOLE. [Concomitant]
     Active Substance: LANSOPRAZOLE
     Indication: GASTROOESOPHAGEAL REFLUX DISEASE
     Dosage: UNK
     Route: 065
  14. HALCION [Concomitant]
     Active Substance: TRIAZOLAM
     Indication: PRODUCT USED FOR UNKNOWN INDICATION
     Dosage: UNK
     Route: 048
  15. CYMBALTA [Concomitant]
     Active Substance: DULOXETINE HYDROCHLORIDE
     Indication: PRODUCT USED FOR UNKNOWN INDICATION
     Dosage: UNK
     Route: 048
  16. IRRIBOW [Suspect]
     Active Substance: RAMOSETRON HYDROCHLORIDE
     Dosage: 5 ?G, QD
     Route: 048

REACTIONS (6)
  - Constipation [Unknown]
  - Pneumonia [Unknown]
  - Loss of consciousness [Unknown]
  - Diarrhoea [Unknown]
  - Blood pressure decreased [Unknown]
  - Blood pressure increased [Unknown]

NARRATIVE: CASE EVENT DATE: 20200826
